FAERS Safety Report 16831584 (Version 3)
Quarter: 2019Q4

REPORT INFORMATION
  Report Type: Spontaneous
  Country: PL (occurrence: PL)
  Receive Date: 20190920
  Receipt Date: 20191217
  Transmission Date: 20200122
  Serious: Yes (Other)
  Sender: FDA-Public Use
  Company Number: PL-GLAXOSMITHKLINE-PL2019167676

PATIENT
  Age: 73 Year
  Sex: Male

DRUGS (22)
  1. ACETYLSALICYLIC ACID [Suspect]
     Active Substance: ASPIRIN
     Indication: CARDIOVASCULAR DISORDER
     Dosage: 75 MG, QD
     Route: 065
  2. ACETYLSALICYLIC ACID [Suspect]
     Active Substance: ASPIRIN
     Indication: HYPERTENSION
  3. INDAPAMIDE. [Suspect]
     Active Substance: INDAPAMIDE
     Indication: CARDIOVASCULAR DISORDER
     Dosage: 1.5 MG, QD
     Route: 065
  4. NEBIVOLOL. [Suspect]
     Active Substance: NEBIVOLOL
     Indication: CARDIOVASCULAR DISORDER
     Dosage: 5 MG, QD
     Route: 065
  5. LOSARTAN. [Suspect]
     Active Substance: LOSARTAN
     Indication: CARDIOVASCULAR DISORDER
     Dosage: 100 MG, QD
     Route: 065
  6. NAPROXEN. [Suspect]
     Active Substance: NAPROXEN
     Indication: MUSCULAR WEAKNESS
     Dosage: THE DOSAGE DEPENDED ON THE SEVERITY OF THE PATIENT^S PAIN
     Route: 061
  7. DICLOFENAC SODIUM. [Suspect]
     Active Substance: DICLOFENAC SODIUM
     Indication: ARTHRALGIA
     Dosage: UNK
     Route: 048
  8. LOSARTAN. [Suspect]
     Active Substance: LOSARTAN
     Indication: CARDIAC FAILURE
  9. POTASSIUM IODIDE. [Suspect]
     Active Substance: POTASSIUM IODIDE
     Indication: HYPERTENSION
     Dosage: UNK
     Route: 065
  10. DICLOFENAC SODIUM. [Suspect]
     Active Substance: DICLOFENAC SODIUM
     Indication: MUSCULAR WEAKNESS
     Dosage: THE DOSAGE DEPENDED ON THE SEVERITY OF THE PATIENT^S PAIN
     Route: 061
  11. ACETYLSALICYLIC ACID [Suspect]
     Active Substance: ASPIRIN
     Indication: CARDIAC FAILURE
  12. INDAPAMIDE. [Suspect]
     Active Substance: INDAPAMIDE
     Indication: CARDIAC FAILURE
  13. NEBIVOLOL. [Suspect]
     Active Substance: NEBIVOLOL
     Indication: HYPERTENSION
  14. ATORVASTATIN [Suspect]
     Active Substance: ATORVASTATIN
     Indication: CARDIAC FAILURE
  15. NAPROXEN. [Suspect]
     Active Substance: NAPROXEN
     Indication: ARTHRALGIA
     Dosage: UNK
     Route: 048
  16. PERINDOPRIL [Suspect]
     Active Substance: PERINDOPRIL
     Indication: HYPERTENSION
  17. NEBIVOLOL. [Suspect]
     Active Substance: NEBIVOLOL
     Indication: CARDIAC FAILURE
  18. ATORVASTATIN [Suspect]
     Active Substance: ATORVASTATIN
     Indication: CARDIOVASCULAR DISORDER
     Dosage: 20 MG, QD
     Route: 065
  19. ATORVASTATIN [Suspect]
     Active Substance: ATORVASTATIN
     Indication: HYPERTENSION
  20. INDAPAMIDE. [Suspect]
     Active Substance: INDAPAMIDE
     Indication: HYPERTENSION
  21. LOSARTAN. [Suspect]
     Active Substance: LOSARTAN
     Indication: HYPERTENSION
  22. PERINDOPRIL [Suspect]
     Active Substance: PERINDOPRIL
     Indication: CARDIAC FAILURE
     Dosage: 5 MG, QD
     Route: 048

REACTIONS (4)
  - Drug intolerance [Unknown]
  - Hyperkalaemia [Recovered/Resolved]
  - Muscular weakness [Recovered/Resolved]
  - Cough [Unknown]

NARRATIVE: CASE EVENT DATE: 2019
